FAERS Safety Report 25121994 (Version 2)
Quarter: 2025Q1

REPORT INFORMATION
  Report Type: Spontaneous
  Country: CN (occurrence: CN)
  Receive Date: 20250326
  Receipt Date: 20250326
  Transmission Date: 20250409
  Serious: No
  Sender: NOVARTIS
  Company Number: CN-002147023-NVSC2025CN048109

PATIENT
  Age: 53 Year
  Sex: Male

DRUGS (6)
  1. CARBAMAZEPINE [Suspect]
     Active Substance: CARBAMAZEPINE
     Indication: Trigeminal neuralgia
     Dosage: 100 MG, BID (GRADUALLY INCREASING TO 200MG EACH TIME, THREE TIMES A  DAY)
     Route: 048
  2. CARBAMAZEPINE [Suspect]
     Active Substance: CARBAMAZEPINE
     Dosage: 100 MG, BID
     Route: 048
  3. CARBAMAZEPINE [Suspect]
     Active Substance: CARBAMAZEPINE
     Dosage: 200 MG, TID
     Route: 048
  4. CARBAMAZEPINE [Suspect]
     Active Substance: CARBAMAZEPINE
     Dosage: 200 MG, BID
     Route: 048
  5. CARBAMAZEPINE [Suspect]
     Active Substance: CARBAMAZEPINE
     Dosage: 100 MG, TID
     Route: 048
  6. CARBAMAZEPINE [Suspect]
     Active Substance: CARBAMAZEPINE
     Dosage: 100 MG, QD
     Route: 048

REACTIONS (9)
  - Trigeminal neuralgia [Recovered/Resolved]
  - Disease recurrence [Unknown]
  - Decreased appetite [Recovered/Resolved]
  - Facial pain [Recovered/Resolved]
  - Maxillofacial pain [Recovered/Resolved]
  - Poor quality sleep [Recovered/Resolved]
  - Restlessness [Recovered/Resolved]
  - Intentional product use issue [Unknown]
  - Therapeutic product effect incomplete [Unknown]

NARRATIVE: CASE EVENT DATE: 20180101
